FAERS Safety Report 5939581-5 (Version None)
Quarter: 2008Q4

REPORT INFORMATION
  Report Type: 
  Country: None (occurrence: None)
  Receive Date: 20081030
  Receipt Date: 20081024
  Transmission Date: 20090506
  Serious: Yes (Life-Threatening, Hospitalization)
  Sender: FDA-Public Use
  Company Number: JHP200800304

PATIENT
  Sex: Female

DRUGS (2)
  1. PITOCIN [Suspect]
     Indication: DRUG USE FOR UNKNOWN INDICATION
     Dates: start: 19961002, end: 19961002
  2. PITOCIN [Suspect]
     Indication: DRUG USE FOR UNKNOWN INDICATION
     Dates: start: 19990425, end: 19990425

REACTIONS (3)
  - ANAPHYLACTIC SHOCK [None]
  - PRURITUS GENERALISED [None]
  - SWELLING [None]
